FAERS Safety Report 22319177 (Version 2)
Quarter: 2023Q4

REPORT INFORMATION
  Report Type: Spontaneous
  Country: AU (occurrence: AU)
  Receive Date: 20230515
  Receipt Date: 20231019
  Transmission Date: 20240109
  Serious: Yes (Death)
  Sender: FDA-Public Use
  Company Number: AU-SERVIER-S23004922

PATIENT

DRUGS (1)
  1. ONCASPAR [Suspect]
     Active Substance: PEGASPARGASE
     Indication: Product used for unknown indication
     Dosage: UNK, FIRST DOSE
     Route: 065

REACTIONS (1)
  - Thrombosis [Fatal]
